FAERS Safety Report 18190351 (Version 1)
Quarter: 2020Q3

REPORT INFORMATION
  Report Type: Spontaneous
  Country: FR (occurrence: FR)
  Receive Date: 20200825
  Receipt Date: 20200825
  Transmission Date: 20201103
  Serious: Yes (Hospitalization)
  Sender: FDA-Public Use
  Company Number: FR-BAUSCH-BL-2020-023519

PATIENT
  Age: 56 Year
  Sex: Female
  Weight: 55 kg

DRUGS (2)
  1. SELEXID [Concomitant]
     Indication: URINARY TRACT INFECTION
     Route: 048
     Dates: start: 20200720, end: 20200724
  2. OFLOXACINE [Suspect]
     Active Substance: OFLOXACIN
     Indication: PYELONEPHRITIS
     Route: 065
     Dates: start: 20200725, end: 20200728

REACTIONS (3)
  - Thrombocytopenia [Recovered/Resolved]
  - Hepatitis [Recovered/Resolved]
  - Leukopenia [Recovered/Resolved]

NARRATIVE: CASE EVENT DATE: 20200728
